FAERS Safety Report 23688255 (Version 1)
Quarter: 2024Q1

REPORT INFORMATION
  Report Type: Spontaneous
  Country: KR (occurrence: None)
  Receive Date: 20240329
  Receipt Date: 20240329
  Transmission Date: 20240410
  Serious: Yes (Death)
  Sender: FDA-Public Use
  Company Number: 2024A075812

PATIENT
  Age: 72 Year
  Sex: Male

DRUGS (8)
  1. TAGRISSO [Suspect]
     Active Substance: OSIMERTINIB
     Dosage: 80MG 28 TABLETS
     Route: 048
     Dates: start: 20190121
  2. TAGRISSO [Suspect]
     Active Substance: OSIMERTINIB
     Dosage: 80MG 30 TABLETS
     Route: 048
     Dates: start: 20190219
  3. TAGRISSO [Suspect]
     Active Substance: OSIMERTINIB
     Dosage: 80MG 28 TABLETS
     Route: 048
     Dates: start: 20190503
  4. TAGRISSO [Suspect]
     Active Substance: OSIMERTINIB
     Dosage: 80MG 28 TABLETS
     Route: 048
     Dates: start: 20210604
  5. TAGRISSO [Suspect]
     Active Substance: OSIMERTINIB
     Dosage: 80MG 28 TABLETS
     Route: 048
     Dates: start: 20210715
  6. TAGRISSO [Suspect]
     Active Substance: OSIMERTINIB
     Dosage: 80MG 60 TABLETS
     Route: 048
     Dates: start: 20210812
  7. TAGRISSO [Suspect]
     Active Substance: OSIMERTINIB
     Dosage: 80MG 70 TABLETS
     Route: 048
     Dates: start: 20211007
  8. TAGRISSO [Suspect]
     Active Substance: OSIMERTINIB
     Dosage: 80MG 60 TABLETS
     Route: 048
     Dates: start: 20211230

REACTIONS (2)
  - Lung neoplasm malignant [Fatal]
  - Pneumonia [Fatal]

NARRATIVE: CASE EVENT DATE: 20230124
